FAERS Safety Report 7780721-3 (Version None)
Quarter: 2011Q3

REPORT INFORMATION
  Report Type: 
  Country: None (occurrence: None)
  Receive Date: 20110927
  Receipt Date: 20110630
  Transmission Date: 20111222
  Serious: No
  Sender: FDA-Public Use
  Company Number: US-BRISTOL-MYERS SQUIBB COMPANY-15744824

PATIENT
  Sex: Female

DRUGS (2)
  1. HYDROCHLOROTHIAZIDE [Suspect]
     Dates: start: 20110101
  2. AVAPRO [Suspect]
     Dates: start: 20110101

REACTIONS (2)
  - TINNITUS [None]
  - DRUG INEFFECTIVE [None]
